FAERS Safety Report 9688338 (Version 3)
Quarter: 2014Q1

REPORT INFORMATION
  Report Type: Report from Study
  Country: US (occurrence: US)
  Receive Date: 20131114
  Receipt Date: 20140113
  Transmission Date: 20141002
  Serious: Yes (Hospitalization, Other)
  Sender: FDA-Public Use
  Company Number: PHHY2013US128387

PATIENT
  Age: 8 Year
  Sex: Female
  Weight: 33.7 kg

DRUGS (26)
  1. ICL670A [Suspect]
     Indication: SICKLE CELL ANAEMIA
     Dosage: UNK UKN, UNK
     Route: 048
     Dates: start: 20101001
  2. ICL670A [Suspect]
     Dosage: 625 MG, UNK
     Route: 048
     Dates: start: 20111222, end: 20130610
  3. ICL670A [Suspect]
     Dosage: 650 MG, UNK
     Route: 048
     Dates: start: 20130611
  4. ICL670A [Suspect]
     Dosage: 625 MG, UNK
     Route: 048
     Dates: start: 20130614
  5. LORTAB [Concomitant]
     Indication: PAIN
     Dosage: 1 DF, Q6H PRN
     Route: 048
  6. APRISO [Concomitant]
     Dosage: 750 MG, DAILY
     Route: 048
  7. FOLVITE [Concomitant]
     Dosage: 1 MG, DAILY
     Route: 048
  8. FOLVITE [Concomitant]
     Dosage: 800 UG, DAILY
     Route: 048
  9. LEVSIN [Concomitant]
     Indication: IRRITABLE BOWEL SYNDROME
     Dosage: 0.125 MG, Q4-6 H, PRN
     Route: 048
  10. IBUPROFEN [Concomitant]
     Indication: PAIN
     Dosage: 200 MG, Q6H, PRN
     Route: 048
  11. MULTIVITAMIN [Concomitant]
     Dosage: 1 DF, DAILY
     Route: 048
  12. PRILOSEC [Concomitant]
     Dosage: 20 MG, DAILY
     Route: 048
  13. ACTIGALL [Concomitant]
     Dosage: 300 MG, DAILY
     Route: 048
  14. MULTIVIT//VITAMINS NOS [Concomitant]
     Dosage: 300 MG, DAILY
     Route: 048
  15. VITAMIN D [Concomitant]
     Dosage: 400 UNITS, DAILY
     Route: 048
  16. ZYRTEC [Concomitant]
     Dosage: 2.5 MG, DAILY PRN
     Route: 048
  17. VITAMIN D3 [Concomitant]
     Dosage: 2000 U, DAILY
     Route: 048
  18. ANASPAZ [Concomitant]
     Dosage: 0.125 MG, EVERY 4 HRS PRN
     Route: 048
  19. XYZAL [Concomitant]
     Dosage: 2.5 MG, DAILY PRN
     Route: 048
  20. EMLA [Concomitant]
  21. VEETIDS [Concomitant]
     Dosage: 250 MG, BID
     Route: 048
  22. TYLENOL [Concomitant]
     Dosage: 1 DF, EVERY 4 HOURS PRN
     Route: 048
  23. AMOXIL [Concomitant]
  24. VICODIN [Concomitant]
     Dosage: 1 DF, EVERY 6 HOURS, PRN
     Route: 048
  25. ZOFRAN [Concomitant]
     Dosage: 4 MG, EVERY 8 HRS, PRN
     Route: 048
  26. OXYCODONE HCL [Concomitant]
     Dosage: 2 MG, EVERY 6 HOURS, PRN
     Route: 048

REACTIONS (14)
  - Pain in extremity [Unknown]
  - Vomiting [Unknown]
  - Kidney enlargement [Unknown]
  - Splenomegaly [Unknown]
  - Gallbladder disorder [Unknown]
  - Cholangitis [Unknown]
  - Fungaemia [Unknown]
  - Disseminated intravascular coagulation [Recovered/Resolved]
  - Liver disorder [Unknown]
  - Abdominal pain [Unknown]
  - Cholelithiasis [Unknown]
  - Pyrexia [Unknown]
  - Diarrhoea [Unknown]
  - Groin pain [Unknown]
